FAERS Safety Report 21817178 (Version 2)
Quarter: 2023Q1

REPORT INFORMATION
  Report Type: Spontaneous
  Country: US (occurrence: US)
  Receive Date: 20230104
  Receipt Date: 20230314
  Transmission Date: 20230417
  Serious: Yes (Hospitalization, Other)
  Sender: FDA-Public Use
  Company Number: US-002147023-NVSC2023US001049

PATIENT
  Age: 0 Year
  Sex: Female
  Weight: 3.628 kg

DRUGS (1)
  1. ONASEMNOGENE ABEPARVOVEC [Suspect]
     Active Substance: ONASEMNOGENE ABEPARVOVEC
     Indication: Spinal muscular atrophy
     Dosage: 3.85 X 10EXP 14 VG (FOR WEIGHT OF 3.285 KG), ONCE/SINGLE
     Route: 042
     Dates: start: 20221005, end: 20221005

REACTIONS (2)
  - Necrotising colitis [Unknown]
  - Haematochezia [Recovered/Resolved]

NARRATIVE: CASE EVENT DATE: 20221025
